FAERS Safety Report 5299046-3 (Version None)
Quarter: 2007Q2

REPORT INFORMATION
  Report Type: 
  Country: None (occurrence: None)
  Receive Date: 20070412
  Receipt Date: 20070412
  Transmission Date: 20071010
  Serious: No
  Sender: FDA-Public Use
  Company Number: None

PATIENT
  Age: 40 Year
  Sex: Female
  Weight: 76.2043 kg

DRUGS (1)
  1. SERTRALINE HCL [Suspect]
     Indication: PREMENSTRUAL SYNDROME
     Dosage: 25 MG 1X A DAY PO
     Route: 048
     Dates: start: 20070212, end: 20070411

REACTIONS (6)
  - CRYING [None]
  - DEPRESSED MOOD [None]
  - DRUG EFFECT DECREASED [None]
  - IRRITABILITY [None]
  - PHARMACEUTICAL PRODUCT COMPLAINT [None]
  - THERAPEUTIC RESPONSE UNEXPECTED WITH DRUG SUBSTITUTION [None]
